FAERS Safety Report 9324352 (Version 2)
Quarter: 2013Q2

REPORT INFORMATION
  Report Type: Spontaneous
  Country: DE (occurrence: DE)
  Receive Date: 20130603
  Receipt Date: 20130603
  Transmission Date: 20140414
  Serious: Yes (Life-Threatening, Hospitalization, Other)
  Sender: FDA-Public Use
  Company Number: DE-BAYER-2013-033689

PATIENT
  Age: 86 Year
  Sex: Female

DRUGS (10)
  1. XARELTO [Suspect]
     Indication: ATRIAL FIBRILLATION
     Dosage: UNK
     Dates: start: 20120917, end: 20130117
  2. XARELTO [Interacting]
     Indication: CEREBROVASCULAR ACCIDENT PROPHYLAXIS
  3. ACETYLSALICYLIC ACID [Interacting]
  4. TORASEMID [Concomitant]
  5. PANTOZOL [Concomitant]
  6. RAMIPRIL [Concomitant]
  7. AMLODIPIN [Concomitant]
  8. SYMBICORT [Concomitant]
     Dosage: 1 DF, BID
  9. SPIRIVA [Concomitant]
     Dosage: 1 DF, QD
  10. THEOPHYLLIN [Concomitant]
     Dosage: 1 DF, BID

REACTIONS (9)
  - Renal failure acute [Unknown]
  - Blood creatinine increased [Unknown]
  - Haemorrhage [None]
  - Fall [None]
  - Labelled drug-drug interaction medication error [None]
  - Hypophagia [None]
  - Dehydration [None]
  - Hypotonia [None]
  - Acute prerenal failure [None]
